FAERS Safety Report 6238784-2 (Version None)
Quarter: 2009Q2

REPORT INFORMATION
  Report Type: 
  Country: None (occurrence: None)
  Receive Date: 20090617
  Receipt Date: 20090617
  Transmission Date: 20091009
  Serious: No
  Sender: FDA-Public Use
  Company Number: None

PATIENT
  Age: 32 Year
  Sex: Female
  Weight: 89.3586 kg

DRUGS (1)
  1. ZICAM NASAL GEL [Suspect]

REACTIONS (4)
  - ABDOMINAL PAIN UPPER [None]
  - DYSGEUSIA [None]
  - HYPOGEUSIA [None]
  - PAROSMIA [None]
